FAERS Safety Report 4300162-0 (Version None)
Quarter: 2004Q1

REPORT INFORMATION
  Report Type: 
  Country: None (occurrence: None)
  Receive Date: 20040220
  Receipt Date: 20040205
  Transmission Date: 20041129
  Serious: Yes (Death)
  Sender: FDA-Public Use
  Company Number: PHHO2004RO01941

PATIENT
  Age: 82 Year
  Sex: Male

DRUGS (4)
  1. EXELON [Suspect]
     Indication: DEMENTIA
     Dosage: 6 MG / DAY
     Route: 048
     Dates: start: 20030821
  2. MIANSERIN [Concomitant]
     Dosage: 60 MG / DAY
  3. HIDROXIZIN [Concomitant]
     Dosage: 25 MG / DAY
  4. TIAPRIDAL [Concomitant]
     Dosage: 100 MG / DAY
     Dates: start: 20031016

REACTIONS (2)
  - DEMENTIA ALZHEIMER'S TYPE [None]
  - DISEASE PROGRESSION [None]
